FAERS Safety Report 5026327-0 (Version None)
Quarter: 2006Q2

REPORT INFORMATION
  Report Type: 
  Country: None (occurrence: None)
  Receive Date: 20060426
  Receipt Date: 20060224
  Transmission Date: 20061013
  Serious: Yes (Other)
  Sender: FDA-Public Use
  Company Number: 2006015798

PATIENT
  Age: 66 Year
  Sex: Female
  Weight: 73.9363 kg

DRUGS (1)
  1. LYRICA [Suspect]
     Indication: NEURALGIA
     Dosage: 150 MG (75 MG,2 IN 1 D)

REACTIONS (1)
  - LIBIDO DECREASED [None]
